FAERS Safety Report 5350754-5 (Version None)
Quarter: 2007Q2

REPORT INFORMATION
  Report Type: 
  Country: None (occurrence: None)
  Receive Date: 20070608
  Receipt Date: 20070530
  Transmission Date: 20071010
  Serious: Yes (Hospitalization)
  Sender: FDA-Public Use
  Company Number: US-ROCHE-500415

PATIENT
  Age: 52 Year
  Sex: Female

DRUGS (3)
  1. XELODA [Suspect]
     Indication: BREAST CANCER
     Route: 048
     Dates: start: 20070401
  2. TYKERB [Suspect]
     Indication: BREAST CANCER
     Dosage: FREQUENCY REPORTED AS ^5 TABLET/PER DAY^
     Route: 048
     Dates: start: 20070401
  3. COUMADIN [Concomitant]

REACTIONS (2)
  - ACNE [None]
  - DIARRHOEA [None]
